FAERS Safety Report 4634075-1 (Version None)
Quarter: 2005Q2

REPORT INFORMATION
  Report Type: 
  Country: None (occurrence: None)
  Receive Date: 20050413
  Receipt Date: 20050401
  Transmission Date: 20051028
  Serious: Yes (Hospitalization)
  Sender: FDA-Public Use
  Company Number: JP-ROCHE-400503

PATIENT
  Age: 81 Year
  Sex: Male

DRUGS (3)
  1. TICLOPIDINE HCL [Suspect]
     Route: 048
     Dates: start: 19960403, end: 19960412
  2. TICLOPIDINE HCL [Suspect]
     Route: 048
     Dates: start: 19960319, end: 19960326
  3. BUFFERIN [Concomitant]
     Dosage: DOSAGE: 242 MG WAS REDUCED TO 81 MG BEFORE DISCONTINUATION.
     Dates: start: 19960319, end: 19960412

REACTIONS (1)
  - HAEMATEMESIS [None]
